FAERS Safety Report 12717767 (Version 1)
Quarter: 2016Q3

REPORT INFORMATION
  Report Type: Spontaneous
  Country: US (occurrence: US)
  Receive Date: 20160906
  Receipt Date: 20160906
  Transmission Date: 20161109
  Serious: Yes (Hospitalization)
  Sender: FDA-Public Use
  Company Number: US-VALIDUS PHARMACEUTICALS LLC-US-2016VAL002545

PATIENT

DRUGS (12)
  1. LASIX [Suspect]
     Active Substance: FUROSEMIDE
     Indication: RENAL FAILURE
     Dosage: 40 MG (40 MG, QD)
     Dates: start: 201503
  2. DEXAMETHASONE. [Concomitant]
     Active Substance: DEXAMETHASONE
     Indication: PLASMA CELL MYELOMA
     Dosage: 4 MG (4 MG, 10 IN 1 WK)
     Dates: start: 201503
  3. LEVOTHYROXINE. [Concomitant]
     Active Substance: LEVOTHYROXINE
     Indication: HYPERTHYROIDISM
     Dosage: 25 MG (25 MG, QD)
     Dates: start: 201601
  4. CITALOPRAM [Concomitant]
     Active Substance: CITALOPRAM HYDROBROMIDE
     Indication: DEPRESSION
     Dosage: 20 MG (20 MG, QD)
     Dates: start: 201601
  5. PERCOCET                           /00446701/ [Concomitant]
     Active Substance: ACETAMINOPHEN\OXYCODONE HYDROCHLORIDE\OXYCODONE TEREPHTHALATE
     Indication: TRIGEMINAL NEURALGIA
     Dosage: 10/325 MG, QID
  6. CARBAMAZEPINE. [Suspect]
     Active Substance: CARBAMAZEPINE
     Indication: TRIGEMINAL NEURALGIA
     Dosage: 800 MG (200 MG, QID)
  7. REVLIMID [Suspect]
     Active Substance: LENALIDOMIDE
     Indication: PLASMA CELL MYELOMA
     Dosage: 10 MG (10 MG, QD)
     Route: 048
     Dates: start: 201503
  8. REVLIMID [Suspect]
     Active Substance: LENALIDOMIDE
     Dosage: 10 MG (10 MG, QD)
     Route: 048
     Dates: start: 20160609, end: 20160702
  9. WARFARIN [Concomitant]
     Active Substance: WARFARIN
     Dosage: 7.5 MG (7.5 MG, 1 IN 1 WK)
     Dates: start: 2004
  10. MINOCYCLINE [Suspect]
     Active Substance: MINOCYCLINE\MINOCYCLINE HYDROCHLORIDE
     Indication: PRODUCT USED FOR UNKNOWN INDICATION
     Dosage: 200 MG (100 MG, BID)
     Dates: start: 201503
  11. WARFARIN [Concomitant]
     Active Substance: WARFARIN
     Indication: PULMONARY EMBOLISM
     Dosage: 5 MG (5 MG, QD)
     Dates: start: 2004
  12. GABAPENTIN. [Concomitant]
     Active Substance: GABAPENTIN
     Indication: TRIGEMINAL NEURALGIA
     Dosage: 900 MG (300 MG, TID)

REACTIONS (4)
  - Tremor [Recovered/Resolved]
  - Incoherent [Recovered/Resolved]
  - Respiratory disorder [Recovered/Resolved]
  - Renal failure [Recovered/Resolved]

NARRATIVE: CASE EVENT DATE: 20160704
